FAERS Safety Report 21720610 (Version 1)
Quarter: 2022Q4

REPORT INFORMATION
  Report Type: Spontaneous
  Country: FR (occurrence: None)
  Receive Date: 20221213
  Receipt Date: 20221213
  Transmission Date: 20230112
  Serious: Yes (Life-Threatening, Hospitalization, Other)
  Sender: FDA-Public Use
  Company Number: FR-Orion Corporation ORION PHARMA-TREX2022-0320

PATIENT
  Age: 52 Year
  Sex: Male

DRUGS (4)
  1. METHOTREXATE [Suspect]
     Active Substance: METHOTREXATE
     Indication: Rheumatic disorder
     Dosage: SINCE 5 DAYS
     Route: 065
  2. CELECOXIB [Concomitant]
     Active Substance: CELECOXIB
     Route: 065
  3. AMOXICILLIN\CLAVULANIC ACID [Concomitant]
     Active Substance: AMOXICILLIN\CLAVULANIC ACID
     Indication: Odynophagia
     Route: 065
  4. INFLIXIMAB [Concomitant]
     Active Substance: INFLIXIMAB
     Route: 065

REACTIONS (10)
  - Drug reaction with eosinophilia and systemic symptoms [Recovered/Resolved]
  - Epstein-Barr virus infection reactivation [Recovered/Resolved]
  - Hepatic cytolysis [Unknown]
  - Interstitial lung disease [Unknown]
  - Cardiac disorder [Unknown]
  - Cardiac ventricular disorder [Unknown]
  - Drug eruption [Unknown]
  - Acute generalised exanthematous pustulosis [Unknown]
  - Bundle branch block left [Recovered/Resolved]
  - Cardiac failure [Recovered/Resolved]
